FAERS Safety Report 7833547-6 (Version None)
Quarter: 2011Q4

REPORT INFORMATION
  Report Type: 
  Country: None (occurrence: None)
  Receive Date: 20111024
  Receipt Date: 20111017
  Transmission Date: 20120403
  Serious: Yes (Hospitalization, Other)
  Sender: FDA-Public Use
  Company Number: JP-B.I. PHARMACEUTICALS,INC./RIDGEFIELD-2011-BP-19280NB

PATIENT
  Sex: Male
  Weight: 59 kg

DRUGS (9)
  1. BEZATOL SR [Suspect]
     Indication: HYPERLIPIDAEMIA
     Dosage: 400 MG
     Route: 048
     Dates: start: 20110601, end: 20110618
  2. URALYT-U [Concomitant]
     Indication: HYPERURICAEMIA
     Dosage: 1 G
     Route: 048
     Dates: start: 20010101
  3. ALLOPURINOL [Concomitant]
     Indication: HYPERURICAEMIA
     Dosage: 100 MG
     Route: 048
     Dates: start: 20010101
  4. PRADAXA [Suspect]
     Indication: ATRIAL FIBRILLATION
     Dosage: 220 MG
     Route: 048
     Dates: start: 20110629, end: 20110718
  5. EVIPROSTAT [Concomitant]
     Indication: BENIGN PROSTATIC HYPERPLASIA
     Route: 048
     Dates: start: 20100618
  6. VERAPAMIL HCL [Concomitant]
     Indication: ATRIAL FIBRILLATION
     Dosage: 120 MG
     Route: 048
     Dates: start: 20010101
  7. STAYBLA [Concomitant]
     Indication: BENIGN PROSTATIC HYPERPLASIA
     Dosage: 0.1 MG
     Route: 048
     Dates: start: 20110408
  8. WARFARIN SODIUM [Suspect]
     Indication: ATRIAL FIBRILLATION
     Dosage: 2.5 MG
     Route: 048
     Dates: start: 20010101, end: 20110629
  9. NORVASC [Concomitant]
     Indication: HYPERTENSION
     Dosage: 2.5 MG
     Route: 048
     Dates: start: 20010101

REACTIONS (5)
  - MELAENA [None]
  - GASTRIC CANCER [None]
  - UPPER GASTROINTESTINAL HAEMORRHAGE [None]
  - ABDOMINAL PAIN UPPER [None]
  - COAGULOPATHY [None]
